FAERS Safety Report 21508372 (Version 1)
Quarter: 2022Q4

REPORT INFORMATION
  Report Type: Report from Study
  Country: CA (occurrence: CA)
  Receive Date: 20221026
  Receipt Date: 20221026
  Transmission Date: 20230112
  Serious: Yes (Death, Life-Threatening, Hospitalization, Disabling, Other)
  Sender: FDA-Public Use
  Company Number: CA-BRISTOL-MYERS SQUIBB COMPANY-2022-068333

PATIENT
  Age: 63 Year
  Sex: Male
  Weight: 101.4 kg

DRUGS (5)
  1. OPDIVO [Suspect]
     Active Substance: NIVOLUMAB
     Indication: Metastatic gastric cancer
     Dosage: 1 IN 2 WEEKS
     Route: 042
     Dates: start: 20220617, end: 20220825
  2. PANTOPRAZOLE [Concomitant]
     Active Substance: PANTOPRAZOLE
     Indication: Product used for unknown indication
     Route: 065
  3. METOCLOPRAMIDE [Concomitant]
     Active Substance: METOCLOPRAMIDE
     Indication: Product used for unknown indication
  4. FLUOROURACIL\LEUCOVORIN CALCIUM\OXALIPLATIN [Concomitant]
     Active Substance: FLUOROURACIL\LEUCOVORIN CALCIUM\OXALIPLATIN
     Indication: Product used for unknown indication
     Dosage: CHEMO.
     Route: 065
  5. DALTEPARIN [Concomitant]
     Active Substance: DALTEPARIN
     Indication: Product used for unknown indication
     Route: 065

REACTIONS (12)
  - Malignant neoplasm progression [Fatal]
  - Somnolence [Unknown]
  - Appetite disorder [Unknown]
  - Haemoglobin decreased [Unknown]
  - Nausea [Unknown]
  - Fatigue [Unknown]
  - Weight abnormal [Unknown]
  - Feeling abnormal [Unknown]
  - Tendon discomfort [Unknown]
  - Dyspnoea exertional [Unknown]
  - Dyspnoea [Fatal]
  - Pneumonitis [Fatal]

NARRATIVE: CASE EVENT DATE: 20220907
